FAERS Safety Report 25826015 (Version 1)
Quarter: 2025Q3

REPORT INFORMATION
  Report Type: Spontaneous
  Country: CA (occurrence: CA)
  Receive Date: 20250919
  Receipt Date: 20250919
  Transmission Date: 20251020
  Serious: Yes (Other)
  Sender: ORGANON
  Company Number: CA-ORGANON-O2509CAN001533

PATIENT
  Age: 60 Year
  Sex: Female

DRUGS (1)
  1. EZETIMIBE [Suspect]
     Active Substance: EZETIMIBE
     Indication: Hypercholesterolaemia
     Dosage: 10 MILLIGRAM, 1 EVERY 1 DAYS
     Route: 048

REACTIONS (2)
  - Reaction to colouring [Recovered/Resolved]
  - Reaction to excipient [Recovered/Resolved]
